FAERS Safety Report 21271657 (Version 1)
Quarter: 2022Q3

REPORT INFORMATION
  Report Type: Report from Study
  Country: US (occurrence: US)
  Receive Date: 20220830
  Receipt Date: 20220830
  Transmission Date: 20221026
  Serious: Yes (Other)
  Sender: FDA-Public Use
  Company Number: US-MYLANLABS-2022M1090369

PATIENT
  Age: 60 Year

DRUGS (5)
  1. ETOPOSIDE [Suspect]
     Active Substance: ETOPOSIDE
     Indication: Hodgkin^s disease refractory
     Dosage: 100 MILLIGRAM/SQ. METER, BID (ON DAYS 5, 4..)
     Route: 065
  2. CYTARABINE [Suspect]
     Active Substance: CYTARABINE
     Indication: Hodgkin^s disease refractory
     Dosage: 100 MILLIGRAM/SQ. METER, BID (ON DAYS 5, 4..)
     Route: 065
  3. MELPHALAN [Suspect]
     Active Substance: MELPHALAN
     Indication: Hodgkin^s disease refractory
     Dosage: 140 MILLIGRAM/SQ. METER, ON DAY 1
     Route: 065
  4. BASILIXIMAB [Suspect]
     Active Substance: BASILIXIMAB
     Indication: Hodgkin^s disease refractory
     Dosage: UNK, 0.3 MCI/KG
     Route: 065
  5. CARMUSTINE [Suspect]
     Active Substance: CARMUSTINE
     Indication: Hodgkin^s disease refractory
     Dosage: 150 MILLIGRAM/SQ. METER, ON DAYS 7 AND 6
     Route: 042

REACTIONS (1)
  - Drug ineffective [Unknown]
